FAERS Safety Report 6526479-7 (Version None)
Quarter: 2009Q4

REPORT INFORMATION
  Report Type: 
  Country: None (occurrence: None)
  Receive Date: 20091229
  Receipt Date: 20091214
  Transmission Date: 20100525
  Serious: Yes (Hospitalization)
  Sender: FDA-Public Use
  Company Number: 003402

PATIENT
  Age: 27 Year
  Sex: Female

DRUGS (2)
  1. KEPPRA [Suspect]
     Indication: SIMPLE PARTIAL SEIZURES
     Dosage: 2000 MG QD ORAL
     Route: 048
     Dates: start: 20071001, end: 20090701
  2. ZONEGRAN [Suspect]
     Indication: CONVULSION
     Dosage: 200 MG BID
     Dates: start: 20090701

REACTIONS (4)
  - DRUG EXPOSURE DURING PREGNANCY [None]
  - PETIT MAL EPILEPSY [None]
  - PREGNANCY [None]
  - PREMATURE LABOUR [None]
